FAERS Safety Report 24198746 (Version 1)
Quarter: 2024Q3

REPORT INFORMATION
  Report Type: Spontaneous
  Country: US (occurrence: US)
  Receive Date: 20240812
  Receipt Date: 20240812
  Transmission Date: 20241016
  Serious: No
  Sender: JOHNSON AND JOHNSON
  Company Number: US-JNJFOC-20240782862

PATIENT
  Age: 58 Year
  Sex: Female

DRUGS (4)
  1. TYLENOL [Suspect]
     Active Substance: ACETAMINOPHEN
     Indication: Pain
     Dosage: TAKE 1 EVERY 4- 6 HRS AND SWITCH OF WITH IBUPROFEN IF NEEDED
     Route: 065
     Dates: start: 20240320
  2. IBUPROFEN [Suspect]
     Active Substance: IBUPROFEN
     Indication: Pain
     Dosage: TAKE 1 EVERY 4- 6 HRS AND SWITCH OF WITH TYLENOL IF NEEDED
     Route: 065
     Dates: start: 20240320
  3. CORTISONE [Concomitant]
     Active Substance: CORTISONE
     Indication: Rash
     Route: 065
     Dates: start: 20240320
  4. LOPRESSOR [Concomitant]
     Active Substance: METOPROLOL TARTRATE
     Indication: Product used for unknown indication
     Route: 048

REACTIONS (1)
  - Off label use [Unknown]

NARRATIVE: CASE EVENT DATE: 20240320
